FAERS Safety Report 6618199-5 (Version None)
Quarter: 2010Q1

REPORT INFORMATION
  Report Type: 
  Country: None (occurrence: None)
  Receive Date: 20100308
  Receipt Date: 20100223
  Transmission Date: 20100710
  Serious: Yes (Hospitalization)
  Sender: FDA-Public Use
  Company Number: US-GENZYME-FABR-1001242

PATIENT
  Sex: Female
  Weight: 50 kg

DRUGS (8)
  1. FABRAZYME [Suspect]
     Indication: FABRY'S DISEASE
     Dosage: 50 MG, Q2W
     Route: 042
     Dates: start: 20081110
  2. PRILOSEC [Concomitant]
     Indication: DRUG USE FOR UNKNOWN INDICATION
  3. PANCREASE MT [Concomitant]
     Indication: DRUG USE FOR UNKNOWN INDICATION
  4. LIDOCAINE HCL VISCOUS [Concomitant]
     Indication: DRUG USE FOR UNKNOWN INDICATION
  5. HI-COSAMINE [Concomitant]
     Indication: DRUG USE FOR UNKNOWN INDICATION
  6. VICODIN [Concomitant]
     Indication: DRUG USE FOR UNKNOWN INDICATION
  7. TRAMADOL HCL [Concomitant]
     Indication: DRUG USE FOR UNKNOWN INDICATION
  8. TYLENOL-500 [Concomitant]
     Indication: PREMEDICATION
     Dosage: 650 MG, UNK
     Route: 048

REACTIONS (2)
  - ADVERSE EVENT [None]
  - PREMATURE RUPTURE OF MEMBRANES [None]
